FAERS Safety Report 16880476 (Version 1)
Quarter: 2019Q4

REPORT INFORMATION
  Report Type: Spontaneous
  Country: US (occurrence: US)
  Receive Date: 20190807
  Receipt Date: 20190807
  Transmission Date: 20200122
  Serious: No
  Sender: FDA-Public Use
  Company Number: None

PATIENT
  Age: 31 Year
  Sex: Male

DRUGS (1)
  1. TRIENTINE HCL 250MG CAP [Suspect]
     Active Substance: TRIENTINE HYDROCHLORIDE
     Route: 058
     Dates: start: 20181003

REACTIONS (2)
  - Bile duct stent insertion [None]
  - Cholelithiasis [None]

NARRATIVE: CASE EVENT DATE: 20190807
